FAERS Safety Report 16556203 (Version 1)
Quarter: 2019Q3

REPORT INFORMATION
  Report Type: Other
  Country: CN (occurrence: CN)
  Receive Date: 20190710
  Receipt Date: 20190710
  Transmission Date: 20191004
  Serious: Yes (Other)
  Sender: FDA-Public Use
  Company Number: CN-AGG-01-2018-1924

PATIENT

DRUGS (2)
  1. AGGRASTAT [Suspect]
     Active Substance: TIROFIBAN HYDROCHLORIDE
     Indication: ANTIPLATELET THERAPY
     Dosage: A LOW DOSE BOLUS 0.25 TO 0.5 MG
     Route: 013
  2. AGGRASTAT [Suspect]
     Active Substance: TIROFIBAN HYDROCHLORIDE
     Indication: ANTIPLATELET THERAPY
     Dosage: 0.2 TO 0.25 MG/H FOR 12 TO 24 HOURS
     Route: 041

REACTIONS (1)
  - Cerebral haemorrhage [Unknown]
